FAERS Safety Report 19991349 (Version 1)
Quarter: 2021Q4

REPORT INFORMATION
  Report Type: Report from Study
  Country: DE (occurrence: DE)
  Receive Date: 20211025
  Receipt Date: 20211025
  Transmission Date: 20220303
  Serious: Yes (Death, Hospitalization, Other)
  Sender: FDA-Public Use
  Company Number: None

PATIENT
  Sex: Female
  Weight: 55 kg

DRUGS (3)
  1. FULVESTRANT [Suspect]
     Active Substance: FULVESTRANT
     Indication: Hormone receptor positive HER2 negative breast cancer
     Dosage: 250 MG, Q4W (DAILY DOSE) (LAST DOSE RECEIVED ON 05 MAR 2021)
     Route: 030
     Dates: start: 20201125, end: 20210315
  2. KISQALI [Suspect]
     Active Substance: RIBOCICLIB
     Indication: Hormone receptor positive HER2 negative breast cancer
     Dosage: 600 MG, QD (SCHEMA 21 DAYS INTAKE, 7 DAYS PAUSE) (LAST DOSE RECEIVED ON 05 APR 2021)
     Route: 048
     Dates: start: 20201126, end: 20210405
  3. FUROSEMIDE [Concomitant]
     Active Substance: FUROSEMIDE
     Indication: Product used for unknown indication
     Dosage: 40 MG (ONCE IN THE MORNING, ONCE AT NOON)
     Route: 048
     Dates: start: 20210421, end: 20210508

REACTIONS (11)
  - Ascites [Fatal]
  - Blood bilirubin increased [Fatal]
  - Blood alkaline phosphatase increased [Fatal]
  - Gamma-glutamyltransferase increased [Fatal]
  - Jaundice [Fatal]
  - Anaemia [Recovered/Resolved]
  - Alanine aminotransferase increased [Fatal]
  - Hepatic failure [Fatal]
  - General physical health deterioration [Fatal]
  - Aspartate aminotransferase increased [Fatal]
  - Epistaxis [Recovered/Resolved]

NARRATIVE: CASE EVENT DATE: 20201216
